FAERS Safety Report 25710662 (Version 1)
Quarter: 2025Q3

REPORT INFORMATION
  Report Type: Spontaneous
  Country: CN (occurrence: CN)
  Receive Date: 20250821
  Receipt Date: 20250821
  Transmission Date: 20251021
  Serious: Yes (Hospitalization, Other)
  Sender: Kenvue
  Company Number: CN-PFIZER INC-2024SGN00641

PATIENT

DRUGS (15)
  1. LOPERAMIDE [Suspect]
     Active Substance: LOPERAMIDE
     Indication: Prophylaxis against diarrhoea
     Route: 048
     Dates: start: 20240111, end: 20240119
  2. TUCATINIB [Suspect]
     Active Substance: TUCATINIB
     Indication: HER2 positive colorectal cancer
     Dosage: 300 MILLIGRAM, TWICE A DAY (BID)
     Route: 048
     Dates: start: 20240111, end: 20240119
  3. OXALIPLATIN [Suspect]
     Active Substance: OXALIPLATIN
     Indication: HER2 positive colorectal cancer
     Route: 017
     Dates: start: 20240111, end: 20240111
  4. LEUCOVORIN [Suspect]
     Active Substance: LEUCOVORIN\LEUCOVORIN CALCIUM
     Indication: HER2 positive colorectal cancer
     Route: 017
     Dates: start: 20240111, end: 20240111
  5. FLUOROURACIL [Suspect]
     Active Substance: FLUOROURACIL
     Indication: HER2 positive colorectal cancer
     Dosage: 3752 MILLIGRAM, ONCE A DAY (400 MG/M2)
     Route: 017
     Dates: start: 20240111, end: 20240111
  6. FLUOROURACIL [Suspect]
     Active Substance: FLUOROURACIL
     Route: 017
     Dates: start: 20240208
  7. TRASTUZUMAB [Suspect]
     Active Substance: TRASTUZUMAB
     Indication: HER2 positive colorectal cancer
     Route: 017
     Dates: start: 20240111, end: 20240111
  8. ESTAZOLAM [Concomitant]
     Active Substance: ESTAZOLAM
     Indication: Insomnia
     Route: 048
     Dates: start: 20231211
  9. INDOMETHACIN [Concomitant]
     Active Substance: INDOMETHACIN
     Indication: Pyrexia
     Route: 054
     Dates: start: 20240111, end: 20240111
  10. CELECOXIB [Concomitant]
     Active Substance: CELECOXIB
     Indication: Product used for unknown indication
     Route: 048
     Dates: start: 20240115, end: 20240118
  11. ONDANSETRON HYDROCHLORIDE [Concomitant]
     Active Substance: ONDANSETRON HYDROCHLORIDE
     Indication: Prophylaxis
     Route: 048
     Dates: start: 20240115, end: 20240118
  12. GLYCYRRHIZIN [Concomitant]
     Active Substance: GLYCYRRHIZIN
     Indication: Prophylaxis
     Route: 048
     Dates: start: 20240115, end: 20240118
  13. ESOMEPRAZOLE MAGNESIUM [Concomitant]
     Active Substance: ESOMEPRAZOLE MAGNESIUM
     Indication: Prophylaxis
     Route: 048
     Dates: start: 20240115, end: 20240118
  14. Bifidobacterium longum;Enterococcus faecalis;Lactobacillus acidophilus [Concomitant]
     Indication: Antidiarrhoeal supportive care
     Route: 048
     Dates: start: 20240117, end: 20240120
  15. MONTMORILLONITE [Concomitant]
     Active Substance: MONTMORILLONITE
     Indication: Antidiarrhoeal supportive care
     Route: 048
     Dates: start: 20240117, end: 20240120

REACTIONS (2)
  - Off label use [Unknown]
  - Myelosuppression [Recovered/Resolved]

NARRATIVE: CASE EVENT DATE: 20240111
